FAERS Safety Report 20446012 (Version 6)
Quarter: 2022Q3

REPORT INFORMATION
  Report Type: Report from Study
  Country: DE (occurrence: None)
  Receive Date: 20220208
  Receipt Date: 20220708
  Transmission Date: 20221026
  Serious: Yes (Death, Life-Threatening, Hospitalization)
  Sender: FDA-Public Use
  Company Number: DE-Eisai Medical Research-EC-2022-107898

PATIENT
  Age: 54 Year
  Sex: Female
  Weight: 82 kg

DRUGS (9)
  1. ERIBULIN [Suspect]
     Active Substance: ERIBULIN
     Indication: Breast cancer
     Route: 042
     Dates: start: 20220124, end: 20220130
  2. ERIBULIN [Suspect]
     Active Substance: ERIBULIN
     Route: 042
     Dates: start: 20220224, end: 20220224
  3. ERIBULIN [Suspect]
     Active Substance: ERIBULIN
     Route: 042
     Dates: start: 20220326, end: 20220326
  4. EPIRUBICIN [Suspect]
     Active Substance: EPIRUBICIN
     Indication: Breast cancer
     Route: 042
     Dates: start: 20220314, end: 20220326
  5. RAMIPRIL [Concomitant]
     Active Substance: RAMIPRIL
     Indication: Hypertension
     Route: 048
     Dates: start: 20171115
  6. RAMIPRIL [Concomitant]
     Active Substance: RAMIPRIL
     Indication: Hypertension
     Route: 048
     Dates: start: 20180630, end: 20220406
  7. METOPROLOL [Concomitant]
     Active Substance: METOPROLOL
     Indication: Hypertension
     Route: 048
     Dates: start: 20171115
  8. METOPROLOL [Concomitant]
     Active Substance: METOPROLOL
     Indication: Hypertension
     Route: 048
     Dates: start: 20180630, end: 20220406
  9. LETROZOLE [Concomitant]
     Active Substance: LETROZOLE
     Indication: Endocrine disorder
     Route: 048

REACTIONS (6)
  - Blood bilirubin increased [Unknown]
  - Febrile neutropenia [Recovered/Resolved]
  - Infection [Not Recovered/Not Resolved]
  - Urinary tract infection [Recovered/Resolved]
  - Multiple organ dysfunction syndrome [Fatal]
  - Hepatic failure [Not Recovered/Not Resolved]

NARRATIVE: CASE EVENT DATE: 20220130
